FAERS Safety Report 25482162 (Version 1)
Quarter: 2025Q2

REPORT INFORMATION
  Report Type: Spontaneous
  Country: US (occurrence: US)
  Receive Date: 20250626
  Receipt Date: 20250626
  Transmission Date: 20250716
  Serious: No
  Sender: TEVA
  Company Number: US-TEVA-VS-3345409

PATIENT

DRUGS (1)
  1. METOCLOPRAMIDE [Suspect]
     Active Substance: METOCLOPRAMIDE
     Indication: Headache
     Route: 065
     Dates: end: 202505

REACTIONS (4)
  - Anxiety [Unknown]
  - Adverse drug reaction [Unknown]
  - Recalled product administered [Unknown]
  - Product commingling [Unknown]
